FAERS Safety Report 11599260 (Version 5)
Quarter: 2019Q4

REPORT INFORMATION
  Report Type: Spontaneous
  Country: US (occurrence: US)
  Receive Date: 20151006
  Receipt Date: 20191220
  Transmission Date: 20200122
  Serious: Yes (Hospitalization)
  Sender: FDA-Public Use
  Company Number: US-ACTELION PHARMACEUTICALS US, INC.-A-US2015-124857

PATIENT
  Age: 64 Year
  Sex: Female

DRUGS (36)
  1. OPSUMIT [Suspect]
     Active Substance: MACITENTAN
     Indication: PULMONARY ARTERIAL HYPERTENSION
     Dosage: 10 MG, QD
     Route: 048
     Dates: start: 20140319
  2. TORSEMIDE. [Concomitant]
     Active Substance: TORSEMIDE
  3. SPIRONOLACTONE. [Concomitant]
     Active Substance: SPIRONOLACTONE
  4. VITAMIN D [Concomitant]
     Active Substance: VITAMIN D NOS
     Dosage: UNK
  5. LORATADINE. [Concomitant]
     Active Substance: LORATADINE
  6. REMODULIN [Concomitant]
     Active Substance: TREPROSTINIL
     Dosage: UNK
  7. HYDROCHLOROTHIAZIDE. [Concomitant]
     Active Substance: HYDROCHLOROTHIAZIDE
  8. NYSTATIN. [Concomitant]
     Active Substance: NYSTATIN
  9. CITALOPRAM [Concomitant]
     Active Substance: CITALOPRAM HYDROBROMIDE
  10. MAGNESIUM OXIDE. [Concomitant]
     Active Substance: MAGNESIUM OXIDE
  11. GABAPENTIN. [Concomitant]
     Active Substance: GABAPENTIN
  12. ULTRAM [Concomitant]
     Active Substance: TRAMADOL HYDROCHLORIDE
  13. METHOCARBAMOL. [Concomitant]
     Active Substance: METHOCARBAMOL
  14. SPIRIVA [Concomitant]
     Active Substance: TIOTROPIUM BROMIDE MONOHYDRATE
  15. LASIX [Concomitant]
     Active Substance: FUROSEMIDE
     Dosage: UNK
  16. POTASSIUM CHLORIDE. [Concomitant]
     Active Substance: POTASSIUM CHLORIDE
  17. FLUCONAZOLE. [Concomitant]
     Active Substance: FLUCONAZOLE
  18. ZOLOFT [Concomitant]
     Active Substance: SERTRALINE HYDROCHLORIDE
  19. QUETIAPINE. [Concomitant]
     Active Substance: QUETIAPINE
  20. TRAMADOL. [Concomitant]
     Active Substance: TRAMADOL
  21. OMEPRAZOLE. [Concomitant]
     Active Substance: OMEPRAZOLE
  22. BUPROPION. [Concomitant]
     Active Substance: BUPROPION
  23. OXYCODONE [Concomitant]
     Active Substance: OXYCODONE
  24. VICODIN [Concomitant]
     Active Substance: ACETAMINOPHEN\HYDROCODONE BITARTRATE
  25. LORAZEPAM. [Concomitant]
     Active Substance: LORAZEPAM
  26. SILDENAFIL. [Concomitant]
     Active Substance: SILDENAFIL
     Dosage: UNK
  27. ENOXAPARIN [Concomitant]
     Active Substance: ENOXAPARIN
  28. WARFARIN [Concomitant]
     Active Substance: WARFARIN
  29. PAROXETINE. [Concomitant]
     Active Substance: PAROXETINE
  30. PREVACID [Concomitant]
     Active Substance: LANSOPRAZOLE
  31. ALBUTEROL. [Concomitant]
     Active Substance: ALBUTEROL
  32. FLUTICASONE. [Concomitant]
     Active Substance: FLUTICASONE
  33. FLUOXETINE [Concomitant]
     Active Substance: FLUOXETINE HYDROCHLORIDE
  34. LAMOTRIGINE. [Concomitant]
     Active Substance: LAMOTRIGINE
  35. FEROSAL [Concomitant]
  36. ZOLPIDEM [Concomitant]
     Active Substance: ZOLPIDEM TARTRATE

REACTIONS (9)
  - Dyspnoea [Not Recovered/Not Resolved]
  - Pleural effusion [Unknown]
  - Fluid retention [Unknown]
  - Diarrhoea [Unknown]
  - Pain in extremity [Unknown]
  - Lethargy [Unknown]
  - Headache [Not Recovered/Not Resolved]
  - Fatigue [Not Recovered/Not Resolved]
  - Dyspnoea exertional [Not Recovered/Not Resolved]

NARRATIVE: CASE EVENT DATE: 20181130
